FAERS Safety Report 12841303 (Version 2)
Quarter: 2016Q4

REPORT INFORMATION
  Report Type: Report from Study
  Country: US (occurrence: US)
  Receive Date: 20161012
  Receipt Date: 20161123
  Transmission Date: 20170207
  Serious: Yes (Other)
  Sender: FDA-Public Use
  Company Number: US-ACTELION-A-US2016-143567

PATIENT
  Age: 71 Year
  Sex: Female

DRUGS (1)
  1. VELETRI [Suspect]
     Active Substance: EPOPROSTENOL
     Indication: PULMONARY ARTERIAL HYPERTENSION
     Dosage: 14.75 NG/KG, PER MIN
     Route: 042
     Dates: start: 20151116

REACTIONS (2)
  - Renal failure [Unknown]
  - Dialysis [Unknown]

NARRATIVE: CASE EVENT DATE: 20160905
